FAERS Safety Report 9351420 (Version 1)
Quarter: 2013Q2

REPORT INFORMATION
  Report Type: Report from Study
  Country: FR (occurrence: FR)
  Receive Date: 20130617
  Receipt Date: 20130617
  Transmission Date: 20140414
  Serious: Yes (Death, Hospitalization)
  Sender: FDA-Public Use
  Company Number: FR-ROCHE-600744

PATIENT
  Age: 76 Year
  Sex: Male

DRUGS (5)
  1. RITUXIMAB [Suspect]
     Indication: LYMPHOMA
     Dosage: FORMULATION :INJECTABLE SOLUTION?CYCLE 1: 11 MARCH 2008, CYCLE 2: 08 APRIL 2008
     Route: 042
  2. RITUXIMAB [Suspect]
     Dosage: CYCLE 3 : 2 JUNE 2008
     Route: 042
  3. RITUXIMAB [Suspect]
     Dosage: MAINTENANCE TREATMENT, TOTAL DOSE INJECTED (860 MG), CYCLE 1
     Route: 042
  4. CYCLOPHOSPHAMIDE [Concomitant]
     Indication: LYMPHOMA
     Dosage: CYCLE 1: 11 MARCH 2008, CYCLE 2: 8 APRIL 2008, CYCLE 3: 2 JUNE 2008.
     Route: 065
  5. FLUDARABINE [Concomitant]
     Indication: LYMPHOMA
     Dosage: CYCLE 1: 11 MARCH 2008, CYCLE 2: 8 APRIL 2008, CYCLE 3: 2 JUNE 2008.
     Route: 065

REACTIONS (2)
  - Febrile bone marrow aplasia [Unknown]
  - Cardiac disorder [Fatal]
